FAERS Safety Report 6454846-9 (Version None)
Quarter: 2009Q4

REPORT INFORMATION
  Report Type: 
  Country: None (occurrence: None)
  Receive Date: 20091124
  Receipt Date: 20091112
  Transmission Date: 20100525
  Serious: Yes (Other)
  Sender: FDA-Public Use
  Company Number: AU-PFIZER INC-2009297116

PATIENT
  Age: 33 Year
  Sex: Female

DRUGS (1)
  1. CHAMPIX [Suspect]
     Indication: SMOKING CESSATION THERAPY
     Route: 048

REACTIONS (8)
  - CHEST DISCOMFORT [None]
  - CONVERSION DISORDER [None]
  - DIARRHOEA [None]
  - ERUCTATION [None]
  - HYPERVENTILATION [None]
  - MAJOR DEPRESSION [None]
  - PANIC ATTACK [None]
  - SOMNOLENCE [None]
